FAERS Safety Report 14259750 (Version 1)
Quarter: 2017Q4

REPORT INFORMATION
  Report Type: Spontaneous
  Country: JP (occurrence: JP)
  Receive Date: 20171207
  Receipt Date: 20171207
  Transmission Date: 20180321
  Serious: Yes (Other)
  Sender: FDA-Public Use
  Company Number: JP-PFIZER INC-2017519242

PATIENT
  Sex: Female

DRUGS (4)
  1. CELECOX [Suspect]
     Active Substance: CELECOXIB
     Indication: WRIST FRACTURE
     Dosage: 200 MG, 2X/DAY
     Route: 048
  2. MARZULENE /01184501/ [Concomitant]
     Active Substance: GLUTAMINE\SODIUM DECAHYDROAZULENE-1-SULFONATE
     Dosage: UNK
  3. CELECOX [Suspect]
     Active Substance: CELECOXIB
     Dosage: UNK UNK, 2X/DAY
     Route: 048
  4. CELECOX [Suspect]
     Active Substance: CELECOXIB
     Dosage: 100 MG, 2X/DAY
     Route: 048

REACTIONS (4)
  - Abdominal pain [Not Recovered/Not Resolved]
  - Arrhythmia [Recovering/Resolving]
  - Intentional underdose [Unknown]
  - Cough [Not Recovered/Not Resolved]
